FAERS Safety Report 21228880 (Version 1)
Quarter: 2022Q3

REPORT INFORMATION
  Report Type: Spontaneous
  Country: US (occurrence: None)
  Receive Date: 20220818
  Receipt Date: 20220818
  Transmission Date: 20221026
  Serious: No
  Sender: FDA-Public Use
  Company Number: None

PATIENT
  Age: 63 Year
  Sex: Male
  Weight: 87.75 kg

DRUGS (11)
  1. REVLIMID [Suspect]
     Active Substance: LENALIDOMIDE
     Indication: Follicle centre lymphoma, follicular grade I, II, III
     Dosage: OTHER FREQUENCY : 21 ON/7 OFF;?
     Route: 048
     Dates: start: 20220630
  2. albuterol sulfate HFA 90 mcg/actuation aerosol inhaler [Concomitant]
  3. ALLOPURINOL [Concomitant]
     Active Substance: ALLOPURINOL
  4. aspirin 325 mg capsule [Concomitant]
  5. Centrum Silver Men 300 mcg-600 mcg-300 mcg tablet [Concomitant]
  6. ondansetron 8 mg disintegrating tablet [Concomitant]
  7. PREDNISONE [Concomitant]
     Active Substance: PREDNISONE
  8. Proventil HFA 90 mcg/actuation aerosol inhaler [Concomitant]
  9. triamcinolone acetonide 0.1 % topical cream [Concomitant]
  10. Vitamin D3 125 mcg (5,000 unit) tablet [Concomitant]
  11. zinc 50 mg tablet [Concomitant]

REACTIONS (1)
  - Rash [None]

NARRATIVE: CASE EVENT DATE: 20220807
